FAERS Safety Report 14353782 (Version 1)
Quarter: 2018Q1

REPORT INFORMATION
  Report Type: Spontaneous
  Country: US (occurrence: US)
  Receive Date: 20180105
  Receipt Date: 20180105
  Transmission Date: 20180509
  Serious: No
  Sender: FDA-Public Use
  Company Number: US-DRREDDYS-USA/USA/17/0086827

PATIENT
  Sex: Female
  Weight: 84.82 kg

DRUGS (3)
  1. NICOTINE. [Suspect]
     Active Substance: NICOTINE
     Route: 061
  2. NICOTINE. [Suspect]
     Active Substance: NICOTINE
     Route: 061
  3. NICOTINE. [Suspect]
     Active Substance: NICOTINE
     Indication: SMOKING CESSATION THERAPY
     Route: 061

REACTIONS (2)
  - Drug ineffective [Unknown]
  - Product quality issue [Unknown]
